FAERS Safety Report 23706194 (Version 2)
Quarter: 2024Q3

REPORT INFORMATION
  Report Type: Report from Study
  Country: US (occurrence: US)
  Receive Date: 20240404
  Receipt Date: 20240918
  Transmission Date: 20241016
  Serious: Yes (Hospitalization, Disabling, Other)
  Sender: MYLAN
  Company Number: US-MYLANLABS-2024M1029224

PATIENT
  Age: 75 Year
  Sex: Female
  Weight: 71.62 kg

DRUGS (8)
  1. ATORVASTATIN [Suspect]
     Active Substance: ATORVASTATIN
     Indication: Cardiac disorder
     Dosage: 10 MILLIGRAM
     Route: 048
     Dates: start: 20160120
  2. ATORVASTATIN [Suspect]
     Active Substance: ATORVASTATIN
     Indication: Hypercholesterolaemia
     Dosage: 20 MILLIGRAM
     Route: 065
  3. PREMPRO [Suspect]
     Active Substance: ESTROGENS, CONJUGATED\MEDROXYPROGESTERONE ACETATE
     Indication: Menopause
     Dosage: (0.45/1.5 MG), QD
     Route: 048
  4. PREMPRO [Suspect]
     Active Substance: ESTROGENS, CONJUGATED\MEDROXYPROGESTERONE ACETATE
     Dosage: (0.35/1.5 MG), QD
     Route: 048
     Dates: start: 20240118, end: 20240301
  5. METOPROLOL [Concomitant]
     Active Substance: METOPROLOL
     Indication: Cardiac disorder
     Dosage: 25 MILLIGRAM
     Route: 048
     Dates: start: 20160120
  6. METOPROLOL [Concomitant]
     Active Substance: METOPROLOL
     Indication: Menopause
  7. LOSARTAN [Concomitant]
     Active Substance: LOSARTAN\LOSARTAN POTASSIUM
     Indication: Cardiac disorder
     Dosage: 25 MILLIGRAM
     Route: 048
     Dates: start: 20160120
  8. LOSARTAN [Concomitant]
     Active Substance: LOSARTAN\LOSARTAN POTASSIUM
     Indication: Menopause
     Dosage: 50 MILLIGRAM, QD (ONCE A DAY)
     Route: 048

REACTIONS (15)
  - Fall [Unknown]
  - Hot flush [Recovered/Resolved]
  - Loss of consciousness [Unknown]
  - Renal impairment [Recovering/Resolving]
  - Concussion [Unknown]
  - Vertigo [Unknown]
  - Dyspnoea exertional [Unknown]
  - Decreased activity [Unknown]
  - Haematoma [Unknown]
  - Blood pressure increased [Unknown]
  - Stress [Recovering/Resolving]
  - Nausea [Unknown]
  - Dizziness [Unknown]
  - Back pain [Unknown]
  - Weight increased [Unknown]

NARRATIVE: CASE EVENT DATE: 20240406
